FAERS Safety Report 11803125 (Version 1)
Quarter: 2015Q4

REPORT INFORMATION
  Report Type: Report from Study
  Country: FR (occurrence: FR)
  Receive Date: 20151204
  Receipt Date: 20151204
  Transmission Date: 20160305
  Serious: Yes (Other)
  Sender: FDA-Public Use
  Company Number: FR-BIOGENIDEC-2014BI065932

PATIENT
  Age: 72 Year
  Sex: Female
  Weight: 90 kg

DRUGS (12)
  1. DOLIPRANE [Concomitant]
     Active Substance: ACETAMINOPHEN
  2. CELLCEPT [Concomitant]
     Active Substance: MYCOPHENOLATE MOFETIL\MYCOPHENOLATE MOFETIL HYDROCHLORIDE
     Indication: MULTIPLE SCLEROSIS
     Route: 048
     Dates: start: 20130205, end: 20131022
  3. RIVOTRIL [Concomitant]
     Active Substance: CLONAZEPAM
     Dates: start: 2005
  4. APRANAX [Concomitant]
     Active Substance: NAPROXEN
  5. EUPANTOL [Concomitant]
     Active Substance: PANTOPRAZOLE SODIUM
     Dates: start: 2005
  6. OLMETEC [Concomitant]
     Active Substance: OLMESARTAN MEDOXOMIL
  7. CELLCEPT [Concomitant]
     Active Substance: MYCOPHENOLATE MOFETIL\MYCOPHENOLATE MOFETIL HYDROCHLORIDE
     Indication: MULTIPLE SCLEROSIS
     Dates: start: 20120516
  8. ATAMAX [Concomitant]
     Dates: start: 2005
  9. FAMPYRA [Suspect]
     Active Substance: DALFAMPRIDINE
     Indication: MULTIPLE SCLEROSIS
     Route: 048
     Dates: start: 20130430
  10. DEPAMIDE [Concomitant]
     Active Substance: VALPROMIDE
  11. LYRICA [Concomitant]
     Active Substance: PREGABALIN
     Dates: start: 2005
  12. AERIUS [Concomitant]
     Active Substance: DESLORATADINE

REACTIONS (1)
  - B-cell lymphoma [Not Recovered/Not Resolved]

NARRATIVE: CASE EVENT DATE: 20131001
